FAERS Safety Report 22333455 (Version 2)
Quarter: 2023Q2

REPORT INFORMATION
  Report Type: Spontaneous
  Country: GB (occurrence: GB)
  Receive Date: 20230517
  Receipt Date: 20230523
  Transmission Date: 20230722
  Serious: Yes (Other)
  Sender: FDA-Public Use
  Company Number: GB-BAXTER-2023BAX021675

PATIENT
  Age: 35 Year
  Sex: Male

DRUGS (7)
  1. DEXTROSE [Suspect]
     Active Substance: DEXTROSE\DEXTROSE MONOHYDRATE
     Indication: Medication dilution
     Dosage: 500 ML
     Route: 042
     Dates: start: 20230510, end: 20230510
  2. DEXTROSE [Suspect]
     Active Substance: DEXTROSE\DEXTROSE MONOHYDRATE
     Dosage: 250 ML
     Route: 042
     Dates: start: 20230510, end: 20230510
  3. DEXTROSE [Suspect]
     Active Substance: DEXTROSE\DEXTROSE MONOHYDRATE
     Indication: Catheter management
     Dosage: 50 ML, AT UNSPECIFIED FREQUENCY
     Route: 042
     Dates: start: 20230510, end: 20230510
  4. OXALIPLATIN [Suspect]
     Active Substance: OXALIPLATIN
     Dosage: 187 MG IN 500 ML 5% GLUCOSE (APPROX 50 MG GIVEN PRIOR REACTION)
     Route: 042
     Dates: start: 20230510, end: 20230510
  5. LEUCOVORIN CALCIUM [Suspect]
     Active Substance: LEUCOVORIN CALCIUM
     Dosage: 350 MG IN 250 ML OF 5% GLUCOSE
     Route: 042
     Dates: start: 20230510, end: 20230510
  6. AKYNZEO (FOSNETUPITANT\PALONOSETRON HYDROCHLORIDE) [Suspect]
     Active Substance: FOSNETUPITANT\PALONOSETRON HYDROCHLORIDE
     Indication: Antiemetic supportive care
     Dosage: 300 MG AT UNSPECIFIED FREQUENCY
     Route: 048
     Dates: start: 20230510, end: 20230510
  7. DEXAMETHASONE [Suspect]
     Active Substance: DEXAMETHASONE
     Indication: Antiemetic supportive care
     Dosage: 6.6 MG, AT UNSPECIFIED FREQUENCY
     Route: 042
     Dates: start: 20230510, end: 20230510

REACTIONS (3)
  - Erythema [Recovered/Resolved]
  - Urticaria [Recovered/Resolved]
  - Pruritus [Recovered/Resolved]

NARRATIVE: CASE EVENT DATE: 20230510
